FAERS Safety Report 8889891 (Version 2)
Quarter: 2013Q1

REPORT INFORMATION
  Report Type: Spontaneous
  Country: US (occurrence: US)
  Receive Date: 20121107
  Receipt Date: 20130123
  Transmission Date: 20140127
  Serious: No
  Sender: FDA-Public Use
  Company Number: US-009507513-1211USA001239

PATIENT
  Sex: Male

DRUGS (4)
  1. DULERA [Suspect]
     Indication: ASTHMA
     Dosage: 200/5MCG
     Dates: start: 201205
  2. DULERA [Suspect]
     Dosage: 200/5MCG
  3. DULERA [Suspect]
     Dosage: 200/5MCG
  4. BISOPROLOL FUMARATE [Concomitant]

REACTIONS (2)
  - Drug ineffective [Recovered/Resolved]
  - Product quality issue [Unknown]
